FAERS Safety Report 9353426 (Version 1)
Quarter: 2013Q2

REPORT INFORMATION
  Report Type: Spontaneous
  Country: US (occurrence: None)
  Receive Date: 20130617
  Receipt Date: 20130617
  Transmission Date: 20140414
  Serious: Yes (Hospitalization)
  Sender: FDA-Public Use
  Company Number: None

PATIENT
  Age: 1 Year
  Sex: Female
  Weight: 8.1 kg

DRUGS (3)
  1. METHOTREXATE [Suspect]
     Dates: end: 20130607
  2. CYTARABINE [Suspect]
     Dates: end: 20130530
  3. HYDROCORTISONE [Suspect]
     Dates: end: 20130530

REACTIONS (7)
  - Pyrexia [None]
  - Aspartate aminotransferase increased [None]
  - Alanine aminotransferase increased [None]
  - Rhinovirus infection [None]
  - Enterovirus infection [None]
  - Mucosal inflammation [None]
  - Pneumonia [None]
